FAERS Safety Report 10039744 (Version 1)
Quarter: 2014Q1

REPORT INFORMATION
  Report Type: Spontaneous
  Country: AT (occurrence: AT)
  Receive Date: 20140326
  Receipt Date: 20140326
  Transmission Date: 20141002
  Serious: Yes (Hospitalization)
  Sender: FDA-Public Use
  Company Number: AT-JNJFOC-20140313498

PATIENT
  Sex: Male
  Weight: 3.05 kg

DRUGS (2)
  1. XARELTO [Suspect]
     Indication: THROMBOSIS PROPHYLAXIS
     Route: 064
     Dates: start: 201212, end: 20130707
  2. XARELTO [Suspect]
     Indication: EMBOLISM VENOUS
     Route: 064
     Dates: start: 201212, end: 20130707

REACTIONS (1)
  - Exposure during pregnancy [Unknown]
